FAERS Safety Report 25967565 (Version 1)
Quarter: 2025Q4

REPORT INFORMATION
  Report Type: Report from Study
  Country: EU (occurrence: EU)
  Receive Date: 20251028
  Receipt Date: 20251028
  Transmission Date: 20260117
  Serious: Yes (Other)
  Sender: TAKEDA
  Company Number: EU-TAKEDA-2025TUS056216

PATIENT
  Age: 67 Year
  Sex: Female

DRUGS (1)
  1. HUMAN IMMUNOGLOBULIN G\HYALURONIDASE RECOMBINANT HUMAN [Suspect]
     Active Substance: HUMAN IMMUNOGLOBULIN G\HYALURONIDASE (HUMAN RECOMBINANT)
     Indication: Hypogammaglobulinaemia
     Dosage: 30 GRAM, Q3WEEKS
     Dates: start: 20250612

REACTIONS (9)
  - Lower respiratory tract infection [Unknown]
  - Muscle twitching [Unknown]
  - Chest pain [Recovered/Resolved]
  - Nervousness [Unknown]
  - Product packaging issue [Unknown]
  - Complication associated with device [Recovered/Resolved]
  - Device infusion issue [Unknown]
  - Pyrexia [Unknown]
  - Nasopharyngitis [Unknown]

NARRATIVE: CASE EVENT DATE: 20250613
